FAERS Safety Report 14242398 (Version 2)
Quarter: 2018Q1

REPORT INFORMATION
  Report Type: Spontaneous
  Country: US (occurrence: US)
  Receive Date: 20171201
  Receipt Date: 20180219
  Transmission Date: 20180508
  Serious: No
  Sender: FDA-Public Use
  Company Number: US-PFIZER INC-2017514442

PATIENT
  Age: 56 Year
  Sex: Female
  Weight: 63.5 kg

DRUGS (1)
  1. ADVIL [Suspect]
     Active Substance: IBUPROFEN
     Indication: BACK PAIN
     Dosage: 2 DF, UNK
     Route: 048
     Dates: start: 20171125, end: 20171125

REACTIONS (5)
  - Drug ineffective [Recovered/Resolved]
  - Dysgeusia [Recovered/Resolved]
  - Poor quality drug administered [Unknown]
  - Product taste abnormal [Recovered/Resolved]
  - Product physical issue [Unknown]

NARRATIVE: CASE EVENT DATE: 20171125
